FAERS Safety Report 9156814 (Version 1)
Quarter: 2013Q1

REPORT INFORMATION
  Report Type: Spontaneous
  Country: US (occurrence: None)
  Receive Date: 20130308
  Receipt Date: 20130308
  Transmission Date: 20140127
  Serious: Yes (Other)
  Sender: FDA-Public Use
  Company Number: None

PATIENT
  Age: 58 Year
  Sex: Male
  Weight: 103 kg

DRUGS (1)
  1. MULTIHANCE [Suspect]
     Indication: FALL

REACTIONS (3)
  - Injection site pain [None]
  - Pruritus [None]
  - Nephrogenic systemic fibrosis [None]
